FAERS Safety Report 17219241 (Version 1)
Quarter: 2020Q1

REPORT INFORMATION
  Report Type: Spontaneous
  Country: US (occurrence: US)
  Receive Date: 20191230
  Receipt Date: 20191230
  Transmission Date: 20200409
  Serious: Yes (Hospitalization)
  Sender: FDA-Public Use
  Company Number: None

PATIENT
  Age: 13 Year
  Sex: Male
  Weight: 32.85 kg

DRUGS (1)
  1. EPIDIOLEX [Suspect]
     Active Substance: CANNABIDIOL
     Indication: EPILEPSY
     Dosage: ?          OTHER ROUTE:G-TUBE?
     Dates: start: 20190624

REACTIONS (4)
  - Pneumonia bacterial [None]
  - Infection [None]
  - Corona virus infection [None]
  - Acute respiratory failure [None]

NARRATIVE: CASE EVENT DATE: 20191218
